FAERS Safety Report 5841919-4 (Version None)
Quarter: 2008Q3

REPORT INFORMATION
  Report Type: 
  Country: None (occurrence: None)
  Receive Date: 20080811
  Receipt Date: 20080811
  Transmission Date: 20090109
  Serious: No
  Sender: FDA-Public Use
  Company Number: None

PATIENT
  Age: 60 Year
  Sex: Male
  Weight: 77.1115 kg

DRUGS (1)
  1. THYROID TAB [Suspect]
     Indication: HYPOTHYROIDISM
     Dosage: 90 MG. -180MGS- TWICE DAILY
     Dates: start: 20070201, end: 20080801

REACTIONS (3)
  - DRUG INEFFECTIVE [None]
  - LABORATORY TEST ABNORMAL [None]
  - WEIGHT INCREASED [None]
